FAERS Safety Report 20754704 (Version 10)
Quarter: 2022Q3

REPORT INFORMATION
  Report Type: Report from Study
  Country: CN (occurrence: None)
  Receive Date: 20220426
  Receipt Date: 20220803
  Transmission Date: 20221027
  Serious: Yes (Hospitalization)
  Sender: FDA-Public Use
  Company Number: CN-ROCHE-3081886

PATIENT
  Age: 61 Year
  Sex: Male
  Weight: 74 kg

DRUGS (61)
  1. ATEZOLIZUMAB [Suspect]
     Active Substance: ATEZOLIZUMAB
     Indication: Non-small cell lung cancer metastatic
     Dosage: DATE OF MOST RECENT DOSE OF DRUG PRIOR TO AE 10-NOV-2021?DATE OF MOST RECENT DOSE OF DRUG PRIOR TO S
     Route: 042
     Dates: start: 20210813
  2. CARBOPLATIN [Suspect]
     Active Substance: CARBOPLATIN
     Indication: Non-small cell lung cancer metastatic
     Dosage: DATE OF MOST RECENT DOSE WAS 11-NOV-2021 (450 MG)
     Route: 042
     Dates: start: 20210813
  3. PEMETREXED [Suspect]
     Active Substance: PEMETREXED
     Indication: Non-small cell lung cancer metastatic
     Dosage: DATE OF MOST RECENT DOSE OF STUDY DRUG PRIOR TO AE 10-NOV-2021?DATE OF MOST RECENT DOSE OF STUDY DRU
     Route: 042
     Dates: start: 20210813
  4. BEVACIZUMAB [Suspect]
     Active Substance: BEVACIZUMAB
     Indication: Non-small cell lung cancer metastatic
     Dosage: DATE OF MOST RECENT DOSE OF DRUG PRIOR TO AE 10-NOV-2021 AT 1110 MG?DATE OF MOST RECENT DOSE OF DRUG
     Route: 042
     Dates: start: 20210813
  5. FOLIC ACID [Concomitant]
     Active Substance: FOLIC ACID
     Route: 048
     Dates: start: 20210721
  6. NIFEDIPINE [Concomitant]
     Active Substance: NIFEDIPINE
     Indication: Hypertension
     Route: 048
     Dates: start: 20210721
  7. SHENG XUE XIAO BAN [Concomitant]
     Indication: Platelet count decreased
     Route: 048
     Dates: start: 20210903, end: 20220720
  8. ROXATIDINE ACETATE HYDROCHLORIDE [Concomitant]
     Active Substance: ROXATIDINE ACETATE HYDROCHLORIDE
     Dates: start: 20220209, end: 20220209
  9. ROXATIDINE ACETATE HYDROCHLORIDE [Concomitant]
     Active Substance: ROXATIDINE ACETATE HYDROCHLORIDE
     Dates: start: 20220302, end: 20220302
  10. ACETYLCYSTEINE [Concomitant]
     Active Substance: ACETYLCYSTEINE
     Dates: start: 20220209, end: 20220209
  11. ACETYLCYSTEINE [Concomitant]
     Active Substance: ACETYLCYSTEINE
     Dates: start: 20220302, end: 20220302
  12. ACETYLCYSTEINE [Concomitant]
     Active Substance: ACETYLCYSTEINE
     Dates: start: 20220323, end: 20220323
  13. ACETYLCYSTEINE [Concomitant]
     Active Substance: ACETYLCYSTEINE
     Dates: start: 20220413, end: 20220413
  14. ACETYLCYSTEINE [Concomitant]
     Active Substance: ACETYLCYSTEINE
     Dates: start: 20211119, end: 20211128
  15. ACETYLCYSTEINE [Concomitant]
     Active Substance: ACETYLCYSTEINE
     Dates: start: 20211208, end: 20211208
  16. ACETYLCYSTEINE [Concomitant]
     Active Substance: ACETYLCYSTEINE
     Dates: start: 20211216, end: 20211220
  17. ACETYLCYSTEINE [Concomitant]
     Active Substance: ACETYLCYSTEINE
     Dates: start: 20211228, end: 20211228
  18. ACETYLCYSTEINE [Concomitant]
     Active Substance: ACETYLCYSTEINE
     Dates: start: 20220119, end: 20220119
  19. ACETYLCYSTEINE [Concomitant]
     Active Substance: ACETYLCYSTEINE
     Dates: start: 20220623, end: 20220623
  20. ACETYLCYSTEINE [Concomitant]
     Active Substance: ACETYLCYSTEINE
     Dates: start: 20220627, end: 20220701
  21. PALONOSETRON HYDROCHLORIDE [Concomitant]
     Active Substance: PALONOSETRON HYDROCHLORIDE
     Indication: Nausea
     Dates: start: 20220209, end: 20220209
  22. PALONOSETRON HYDROCHLORIDE [Concomitant]
     Active Substance: PALONOSETRON HYDROCHLORIDE
     Indication: Vomiting
     Dates: start: 20211208, end: 20211208
  23. PALONOSETRON HYDROCHLORIDE [Concomitant]
     Active Substance: PALONOSETRON HYDROCHLORIDE
     Dates: start: 20211228, end: 20211228
  24. PALONOSETRON HYDROCHLORIDE [Concomitant]
     Active Substance: PALONOSETRON HYDROCHLORIDE
     Dates: start: 20220209, end: 20220209
  25. DEXAMETHASONE [Concomitant]
     Active Substance: DEXAMETHASONE
     Route: 048
     Dates: start: 20220208, end: 20220210
  26. DEXAMETHASONE [Concomitant]
     Active Substance: DEXAMETHASONE
     Route: 048
     Dates: start: 20220322, end: 20220323
  27. DEXAMETHASONE [Concomitant]
     Active Substance: DEXAMETHASONE
     Route: 048
     Dates: start: 20220412, end: 20220414
  28. DEXAMETHASONE [Concomitant]
     Active Substance: DEXAMETHASONE
     Route: 048
     Dates: start: 20220301, end: 20220303
  29. DEXAMETHASONE [Concomitant]
     Active Substance: DEXAMETHASONE
     Route: 048
     Dates: start: 20211109, end: 20211111
  30. DEXAMETHASONE [Concomitant]
     Active Substance: DEXAMETHASONE
     Route: 048
     Dates: start: 20211207, end: 20211209
  31. DEXAMETHASONE [Concomitant]
     Active Substance: DEXAMETHASONE
     Route: 048
     Dates: start: 20211227, end: 20211229
  32. DEXAMETHASONE [Concomitant]
     Active Substance: DEXAMETHASONE
     Route: 048
     Dates: start: 20220118, end: 20220120
  33. DEXAMETHASONE [Concomitant]
     Active Substance: DEXAMETHASONE
     Route: 048
     Dates: start: 20220622, end: 20220624
  34. TROPISETRON HYDROCHLORIDE AND SODIUM CHLORIDE [Concomitant]
     Indication: Nausea
     Dates: start: 20220302, end: 20220302
  35. TROPISETRON HYDROCHLORIDE AND SODIUM CHLORIDE [Concomitant]
     Dates: start: 20220413, end: 20220413
  36. TROPISETRON HYDROCHLORIDE AND SODIUM CHLORIDE [Concomitant]
     Dates: start: 20211110, end: 20211111
  37. FAMOTIDINE [Concomitant]
     Active Substance: FAMOTIDINE
     Dates: start: 20220323, end: 20220323
  38. FAMOTIDINE [Concomitant]
     Active Substance: FAMOTIDINE
     Dates: start: 20220413, end: 20220413
  39. FAMOTIDINE [Concomitant]
     Active Substance: FAMOTIDINE
     Dates: start: 20220428, end: 20220505
  40. FAMOTIDINE [Concomitant]
     Active Substance: FAMOTIDINE
     Dates: start: 20211110, end: 20211111
  41. FAMOTIDINE [Concomitant]
     Active Substance: FAMOTIDINE
     Dates: start: 20211119, end: 20211128
  42. FAMOTIDINE [Concomitant]
     Active Substance: FAMOTIDINE
     Dates: start: 20211208, end: 20211208
  43. FAMOTIDINE [Concomitant]
     Active Substance: FAMOTIDINE
     Dates: start: 20211216, end: 20211220
  44. FAMOTIDINE [Concomitant]
     Active Substance: FAMOTIDINE
     Dates: start: 20211228, end: 20211228
  45. FAMOTIDINE [Concomitant]
     Active Substance: FAMOTIDINE
     Dates: start: 20220119, end: 20220119
  46. FAMOTIDINE [Concomitant]
     Active Substance: FAMOTIDINE
     Dates: start: 20220623, end: 20220623
  47. FAMOTIDINE [Concomitant]
     Active Substance: FAMOTIDINE
     Dates: start: 20220627, end: 20220701
  48. BICYCLOL [Concomitant]
     Active Substance: BICYCLOL
     Dates: start: 20220324, end: 20220326
  49. METHYLPREDNISOLONE SODIUM SUCCINATE [Concomitant]
     Active Substance: METHYLPREDNISOLONE SODIUM SUCCINATE
     Indication: Colitis
     Dates: start: 20220429, end: 20220505
  50. COMPOUND DIISOPROPYLAMINE DICHLOROACETATE FOR INJECTION [Concomitant]
     Dates: start: 20211110, end: 20211111
  51. POLYETHYLENE GLYCOL ELECTROLYTES [Concomitant]
     Dates: start: 20220422, end: 20220422
  52. POLYETHYLENE GLYCOL ELECTROLYTES [Concomitant]
     Dates: start: 20220511, end: 20220511
  53. DYCLONINE HYDROCHLORIDE [Concomitant]
     Active Substance: DYCLONINE HYDROCHLORIDE
     Indication: Local anaesthesia
     Dates: start: 20220420, end: 20220420
  54. DYCLONINE HYDROCHLORIDE [Concomitant]
     Active Substance: DYCLONINE HYDROCHLORIDE
     Dates: start: 20220422, end: 20220422
  55. DYCLONINE HYDROCHLORIDE [Concomitant]
     Active Substance: DYCLONINE HYDROCHLORIDE
     Dates: start: 20220511, end: 20220511
  56. CEFTRIAXONE SODIUM [Concomitant]
     Active Substance: CEFTRIAXONE SODIUM
     Dates: start: 20220513, end: 20220513
  57. ACETAMINOPHEN\DIHYDROCODEINE BITARTRATE [Concomitant]
     Active Substance: ACETAMINOPHEN\DIHYDROCODEINE BITARTRATE
     Indication: Pain
     Dates: start: 20220513, end: 20220513
  58. PROPOFOL [Concomitant]
     Active Substance: PROPOFOL
     Indication: Anaesthesia
     Dates: start: 20220422, end: 20220422
  59. MEDROL [Concomitant]
     Active Substance: METHYLPREDNISOLONE
     Indication: Colitis
     Dates: start: 20220506, end: 20220506
  60. AZASETRON HYDROCHLORIDE [Concomitant]
     Active Substance: AZASETRON HYDROCHLORIDE
     Dates: start: 20220623, end: 20220623
  61. BACILLUS LICHENIFORMIS CAPSULE,LIVE [Concomitant]
     Dates: start: 20220627, end: 20220630

REACTIONS (1)
  - Haemorrhoids [Not Recovered/Not Resolved]

NARRATIVE: CASE EVENT DATE: 20211122
